FAERS Safety Report 20410265 (Version 1)
Quarter: 2022Q1

REPORT INFORMATION
  Report Type: Spontaneous
  Country: US (occurrence: None)
  Receive Date: 20220131
  Receipt Date: 20220131
  Transmission Date: 20220423
  Serious: Yes (Hospitalization)
  Sender: FDA-Public Use
  Company Number: None

PATIENT
  Age: 84 Year
  Sex: Male

DRUGS (1)
  1. RIVAROXABAN [Suspect]
     Active Substance: RIVAROXABAN
     Indication: Atrial fibrillation
     Dates: start: 20201106, end: 20220120

REACTIONS (3)
  - Haemoptysis [None]
  - Pulmonary haematoma [None]
  - Haemorrhage [None]

NARRATIVE: CASE EVENT DATE: 20220114
